FAERS Safety Report 16145781 (Version 1)
Quarter: 2019Q2

REPORT INFORMATION
  Report Type: Spontaneous
  Country: RO (occurrence: RO)
  Receive Date: 20190402
  Receipt Date: 20190402
  Transmission Date: 20190711
  Serious: Yes (Hospitalization)
  Sender: FDA-Public Use
  Company Number: RO-ROCHE-2287589

PATIENT
  Age: 51 Year
  Sex: Female

DRUGS (3)
  1. KADCYLA [Suspect]
     Active Substance: ADO-TRASTUZUMAB EMTANSINE
     Indication: BREAST CANCER METASTATIC
     Route: 042
     Dates: start: 201711, end: 201903
  2. PACLITAXEL. [Concomitant]
     Active Substance: PACLITAXEL
  3. HERCEPTIN [Suspect]
     Active Substance: TRASTUZUMAB
     Indication: BREAST CANCER
     Route: 058
     Dates: start: 20150703, end: 20160201

REACTIONS (2)
  - Myocardial infarction [Recovered/Resolved]
  - Ejection fraction decreased [Unknown]

NARRATIVE: CASE EVENT DATE: 20160203
